FAERS Safety Report 14520568 (Version 2)
Quarter: 2018Q1

REPORT INFORMATION
  Report Type: Spontaneous
  Country: US (occurrence: US)
  Receive Date: 20180212
  Receipt Date: 20180301
  Transmission Date: 20180509
  Serious: Yes (Other)
  Sender: FDA-Public Use
  Company Number: US-BAYER-2018-022482

PATIENT
  Age: 36 Year
  Sex: Female

DRUGS (2)
  1. MIRENA [Suspect]
     Active Substance: LEVONORGESTREL
  2. MIRENA [Suspect]
     Active Substance: LEVONORGESTREL
     Dosage: 20 MCG/24HR, CONT
     Route: 015

REACTIONS (7)
  - Embedded device [None]
  - Device breakage [None]
  - Complication of device removal [None]
  - Coital bleeding [None]
  - Procedural pain [None]
  - Procedural haemorrhage [None]
  - Genital haemorrhage [None]

NARRATIVE: CASE EVENT DATE: 201712
